FAERS Safety Report 6279840-2 (Version None)
Quarter: 2009Q3

REPORT INFORMATION
  Report Type: 
  Country: None (occurrence: None)
  Receive Date: 20090723
  Receipt Date: 20090714
  Transmission Date: 20100115
  Serious: Yes (Hospitalization)
  Sender: FDA-Public Use
  Company Number: PHHY2009MX29574

PATIENT
  Sex: Female

DRUGS (2)
  1. DIOVAN [Suspect]
     Indication: HYPERTENSION
     Dosage: 1 DF (320 MG)/ DAY
     Dates: start: 20060201
  2. DIOVAN [Suspect]
     Dosage: 1 DF (320 MG)/ DAY
     Dates: start: 20090628

REACTIONS (1)
  - EPISTAXIS [None]
